FAERS Safety Report 5823670-X (Version None)
Quarter: 2008Q3

REPORT INFORMATION
  Report Type: 
  Country: None (occurrence: None)
  Receive Date: 20080725
  Receipt Date: 20080714
  Transmission Date: 20090109
  Serious: Yes (Other)
  Sender: FDA-Public Use
  Company Number: US-PFIZER INC-2008039752

PATIENT
  Sex: Female
  Weight: 57 kg

DRUGS (4)
  1. CHANTIX [Suspect]
     Indication: SMOKING CESSATION THERAPY
     Route: 048
  2. XYZAL [Concomitant]
     Route: 048
  3. EFFEXOR XR [Concomitant]
     Indication: DEPRESSION
  4. ALPRAZOLAM [Concomitant]
     Route: 048

REACTIONS (5)
  - ABNORMAL DREAMS [None]
  - ANXIETY [None]
  - DEPRESSION [None]
  - INSOMNIA [None]
  - MEDICATION ERROR [None]
